FAERS Safety Report 19958742 (Version 1)
Quarter: 2021Q4

REPORT INFORMATION
  Report Type: Spontaneous
  Country: US (occurrence: US)
  Receive Date: 20211012
  Receipt Date: 20211012
  Transmission Date: 20220303
  Serious: Yes (Hospitalization)
  Sender: FDA-Public Use
  Company Number: None

PATIENT
  Age: 66 Year
  Sex: Female

DRUGS (1)
  1. ARANESP [Suspect]
     Active Substance: DARBEPOETIN ALFA
     Indication: Endometrial cancer
     Dosage: ?          OTHER FREQUENCY:Q3WKS ;
     Route: 058
     Dates: start: 20210120

REACTIONS (19)
  - Therapy interrupted [None]
  - Cardiac disorder [None]
  - Endometrial cancer [None]
  - Chronic kidney disease [None]
  - Chronic obstructive pulmonary disease [None]
  - Cardiac failure congestive [None]
  - Coagulopathy [None]
  - Diverticulum intestinal [None]
  - Hypertension [None]
  - Ill-defined disorder [None]
  - Osteoarthritis [None]
  - Osteoarthritis [None]
  - Asthma [None]
  - Aortic valve stenosis [None]
  - Iron deficiency anaemia [None]
  - Mitral valve disease [None]
  - Type IIa hyperlipidaemia [None]
  - Type 1 diabetes mellitus [None]
  - Vitamin B complex deficiency [None]

NARRATIVE: CASE EVENT DATE: 20210901
